FAERS Safety Report 8163627 (Version 2)
Quarter: 2013Q2

REPORT INFORMATION
  Report Type: Spontaneous
  Country: NL (occurrence: NL)
  Receive Date: 20110930
  Receipt Date: 20130603
  Transmission Date: 20140414
  Serious: Yes (Death, Other)
  Sender: FDA-Public Use
  Company Number: NL-GLAXOSMITHKLINE-B0751792A

PATIENT
  Age: 21 Year
  Sex: Female

DRUGS (1)
  1. PROPAFENONE [Suspect]
     Indication: PRODUCT USED FOR UNKNOWN INDICATION
     Route: 048

REACTIONS (4)
  - Toxicity to various agents [Fatal]
  - Brain injury [Fatal]
  - Shock [Fatal]
  - Cardiac arrest [Fatal]
